FAERS Safety Report 15556728 (Version 1)
Quarter: 2018Q4

REPORT INFORMATION
  Report Type: Spontaneous
  Country: GB (occurrence: GB)
  Receive Date: 20181026
  Receipt Date: 20181026
  Transmission Date: 20190205
  Serious: Yes (Other)
  Sender: FDA-Public Use
  Company Number: GB-TEVA-2018-GB-969403

PATIENT
  Age: 8 Year
  Sex: Female
  Weight: 16 kg

DRUGS (4)
  1. LORATADINE. [Concomitant]
     Active Substance: LORATADINE
     Dosage: 5 ML DAILY;
     Dates: start: 20171024
  2. SALBUTAMOL [Concomitant]
     Active Substance: ALBUTEROL
     Dosage: VIA SPACER
     Route: 055
     Dates: start: 20171024
  3. CLENIL MODULITE [Concomitant]
     Active Substance: BECLOMETHASONE DIPROPIONATE
     Dosage: 2 DOSAGE FORMS DAILY; PUFF
     Dates: start: 20171024
  4. AMOXICILLIN. [Suspect]
     Active Substance: AMOXICILLIN
     Dosage: 250MG/5ML
     Route: 048
     Dates: start: 20181001

REACTIONS (2)
  - Paraesthesia oral [Recovered/Resolved]
  - Rash pruritic [Recovered/Resolved]

NARRATIVE: CASE EVENT DATE: 20181001
